FAERS Safety Report 10096153 (Version 2)
Quarter: 2014Q2

REPORT INFORMATION
  Report Type: Spontaneous
  Country: US (occurrence: US)
  Receive Date: 20140422
  Receipt Date: 20140422
  Transmission Date: 20141212
  Serious: Yes (Hospitalization, Other)
  Sender: FDA-Public Use
  Company Number: US-CELGENEUS-163-POMAL-13112807

PATIENT
  Age: 69 Year
  Sex: Male
  Weight: 94.89 kg

DRUGS (12)
  1. POMALYST [Suspect]
     Indication: PLASMA CELL MYELOMA
     Dosage: 4 MILLIGRAM
     Route: 048
     Dates: start: 20130916, end: 20131111
  2. POMALYST [Suspect]
     Dosage: 3 MILLIGRAM
     Route: 048
     Dates: start: 20131114
  3. DECADRON [Concomitant]
     Indication: PRODUCT USED FOR UNKNOWN INDICATION
     Dosage: 40 MILLIGRAM
     Route: 065
     Dates: start: 20110705
  4. DECADRON [Concomitant]
     Route: 048
  5. KYPROLIS/CARFILZOMIB [Concomitant]
     Indication: PRODUCT USED FOR UNKNOWN INDICATION
     Dosage: 20 MILLIGRAM/SQ. METER
     Route: 065
     Dates: start: 201305
  6. ADVAIR DISKUS [Concomitant]
     Indication: PRODUCT USED FOR UNKNOWN INDICATION
     Dosage: 100-50MCG
  7. ALBUTEROL SULFATE [Concomitant]
     Indication: PRODUCT USED FOR UNKNOWN INDICATION
     Dosage: 2.5MG/3ML
     Route: 065
  8. AZITHROMYCIN [Concomitant]
     Indication: PRODUCT USED FOR UNKNOWN INDICATION
     Dosage: 250 MILLIGRAM
     Route: 048
  9. SPIRIVA HANDIHALER [Concomitant]
     Indication: PRODUCT USED FOR UNKNOWN INDICATION
     Dosage: 18 MICROGRAM
     Route: 048
  10. TAMSULOSIN HCL [Concomitant]
     Indication: PRODUCT USED FOR UNKNOWN INDICATION
     Dosage: .4 MILLIGRAM
     Route: 048
  11. VICODIN [Concomitant]
     Indication: PRODUCT USED FOR UNKNOWN INDICATION
     Dosage: 5/500-5/300
     Route: 048
  12. ZOMETA [Concomitant]
     Indication: PRODUCT USED FOR UNKNOWN INDICATION
     Dosage: 4MG/100ML
     Route: 065

REACTIONS (6)
  - Chronic obstructive pulmonary disease [Unknown]
  - Pneumonia [Unknown]
  - Prostatic specific antigen increased [Unknown]
  - Laboratory test abnormal [Unknown]
  - Anaemia [Unknown]
  - Leukopenia [Unknown]
